FAERS Safety Report 22617609 (Version 1)
Quarter: 2023Q2

REPORT INFORMATION
  Report Type: Other
  Country: None (occurrence: US)
  Receive Date: 20230620
  Receipt Date: 20230620
  Transmission Date: 20230721
  Serious: Yes (Other)
  Sender: FDA-Public Use
  Company Number: US-WES Pharma Inc-2142876

PATIENT
  Age: 59 Year
  Sex: Female

DRUGS (3)
  1. POTASSIUM CHLORIDE [Suspect]
     Active Substance: POTASSIUM CHLORIDE
     Indication: Colonoscopy
     Route: 065
  2. MAGNESIUM SULFATE [Suspect]
     Active Substance: MAGNESIUM SULFATE
     Route: 065
  3. SODIUM SULFATE [Suspect]
     Active Substance: SODIUM SULFATE
     Route: 065

REACTIONS (1)
  - Gastritis haemorrhagic [Unknown]
